FAERS Safety Report 26084777 (Version 1)
Quarter: 2025Q4

REPORT INFORMATION
  Report Type: Report from Study
  Country: GB (occurrence: GB)
  Receive Date: 20251124
  Receipt Date: 20251124
  Transmission Date: 20260117
  Serious: Yes (Other)
  Sender: ABBVIE
  Company Number: GB-ABBVIE-6556952

PATIENT
  Age: 79 Year
  Sex: Female

DRUGS (1)
  1. SKYRIZI [Suspect]
     Active Substance: RISANKIZUMAB-RZAA
     Indication: Crohn^s disease
     Dosage: DOSE: SKYRIZI 360MG/2.4ML ?FOA: SOLUTION FOR INJECTION CARTRIDGE ON-BODY DEVICE
     Route: 058
     Dates: start: 20240415

REACTIONS (2)
  - Cerebrovascular accident [Unknown]
  - Device issue [Unknown]

NARRATIVE: CASE EVENT DATE: 20251010
